FAERS Safety Report 9845541 (Version 3)
Quarter: 2014Q2

REPORT INFORMATION
  Report Type: Report from Study
  Country: CA (occurrence: CA)
  Receive Date: 20140127
  Receipt Date: 20140423
  Transmission Date: 20141212
  Serious: Yes (Hospitalization)
  Sender: FDA-Public Use
  Company Number: CA-INCYTE CORPORATION-2013IN000482

PATIENT
  Age: 77 Year
  Sex: Female

DRUGS (4)
  1. JAKAVI [Suspect]
     Indication: MYELOFIBROSIS
     Dosage: 20 MG, BID
     Route: 048
     Dates: start: 20130114
  2. JAKAVI [Suspect]
     Dosage: 20 MG EVERY MORNING AND 15 MG EVERY SLEEPING HOUR
     Route: 048
     Dates: start: 20130618
  3. JAKAVI [Suspect]
     Dosage: 15 MG, BID
     Route: 048
  4. SYNTHROID [Concomitant]

REACTIONS (8)
  - Loss of consciousness [Unknown]
  - Cystitis [Unknown]
  - Amnesia [Unknown]
  - Memory impairment [Unknown]
  - Increased appetite [Unknown]
  - Hunger [Unknown]
  - Weight increased [Unknown]
  - Anaemia [Unknown]
